FAERS Safety Report 7085239-1 (Version None)
Quarter: 2010Q4

REPORT INFORMATION
  Report Type: 
  Country: None (occurrence: None)
  Receive Date: 20101105
  Receipt Date: 20101022
  Transmission Date: 20110411
  Serious: Yes (Other)
  Sender: FDA-Public Use
  Company Number: US-AMGEN-QUU443529

PATIENT

DRUGS (13)
  1. NPLATE [Suspect]
     Indication: IDIOPATHIC THROMBOCYTOPENIC PURPURA
     Dosage: 80 A?G, UNK
     Route: 058
     Dates: start: 20100923, end: 20100923
  2. NPLATE [Suspect]
     Dosage: 80 A?G, UNK
     Dates: start: 20100923
  3. ACYCLOVIR [Concomitant]
     Dosage: 400 MG, Q12H
  4. BACTRIM DS [Concomitant]
  5. DANAZOL [Concomitant]
     Dosage: 2 UNK, Q12H
  6. DIGOXIN [Concomitant]
     Dosage: 250 A?G, QD
     Route: 048
  7. FLUCONAZOLE [Concomitant]
     Dosage: 400 MG, QD
     Route: 048
  8. ISOSORBIDE MONONITRATE [Concomitant]
     Dosage: 30 MG, UNK
     Route: 048
  9. METOPROLOL [Concomitant]
     Dosage: 25 MG, Q12H
     Route: 048
  10. NEXIUM [Concomitant]
     Dosage: 40 MG, QD
  11. NITROGLYCERIN [Concomitant]
  12. OXYCODONE HCL [Concomitant]
  13. VITAMIN A [Concomitant]
     Dosage: 1000 MG, QD
     Route: 048

REACTIONS (3)
  - DEEP VEIN THROMBOSIS [None]
  - OEDEMA PERIPHERAL [None]
  - PAIN IN EXTREMITY [None]
